FAERS Safety Report 25686439 (Version 1)
Quarter: 2025Q3

REPORT INFORMATION
  Report Type: Spontaneous
  Country: TN (occurrence: TN)
  Receive Date: 20250815
  Receipt Date: 20250815
  Transmission Date: 20251020
  Serious: Yes (Other)
  Sender: PHARMACEUTICAL ASSOC
  Company Number: TN-PAIPHARMA-2025-TN-000004

PATIENT
  Age: 2 Day
  Sex: Female

DRUGS (2)
  1. FLUOXETINE [Suspect]
     Active Substance: FLUOXETINE HYDROCHLORIDE
     Indication: Product used for unknown indication
     Route: 015
  2. INSULIN NOS [Concomitant]
     Active Substance: INSULIN NOS
     Route: 015

REACTIONS (1)
  - Drug withdrawal syndrome [Unknown]
